FAERS Safety Report 23291714 (Version 1)
Quarter: 2023Q4

REPORT INFORMATION
  Report Type: Report from Study
  Country: CA (occurrence: CA)
  Receive Date: 20231213
  Receipt Date: 20231213
  Transmission Date: 20240110
  Serious: Yes (Other)
  Sender: FDA-Public Use
  Company Number: CA-SAMSUNG BIOEPIS-SB-2023-32762

PATIENT
  Age: 62 Year
  Sex: Female

DRUGS (4)
  1. RENFLEXIS [Suspect]
     Active Substance: INFLIXIMAB-ABDA
     Indication: Crohn^s disease
     Dosage: INDUCTION DOSE 1 AND 2
     Route: 065
     Dates: start: 20231116, end: 20231130
  2. VITAMIN B12 [Concomitant]
     Active Substance: CYANOCOBALAMIN
     Indication: Product used for unknown indication
     Dosage: UNKNOWN
     Route: 065
  3. RABEPRAZOLE [Concomitant]
     Active Substance: RABEPRAZOLE
     Indication: Product used for unknown indication
     Dosage: UNKNOWN
     Route: 065
  4. TYLENOL [Concomitant]
     Active Substance: ACETAMINOPHEN
     Indication: Product used for unknown indication
     Dosage: UNKNOWN, PRN
     Route: 065

REACTIONS (7)
  - Peripheral swelling [Recovering/Resolving]
  - Chills [Unknown]
  - Erythema [Recovering/Resolving]
  - Asthenia [Unknown]
  - Loss of consciousness [Unknown]
  - Seizure [Unknown]
  - Neck pain [Unknown]
